FAERS Safety Report 15360634 (Version 1)
Quarter: 2018Q3

REPORT INFORMATION
  Report Type: Spontaneous
  Country: US (occurrence: US)
  Receive Date: 20180907
  Receipt Date: 20180907
  Transmission Date: 20181010
  Serious: Yes (Hospitalization)
  Sender: FDA-Public Use
  Company Number: US-VERTEX PHARMACEUTICALS-2018-006282

PATIENT
  Sex: Female

DRUGS (34)
  1. RANITIDINE. [Concomitant]
     Active Substance: RANITIDINE
  2. MONTELUKAST [Concomitant]
     Active Substance: MONTELUKAST SODIUM
  3. ORKAMBI [Suspect]
     Active Substance: IVACAFTOR\LUMACAFTOR
     Indication: CYSTIC FIBROSIS
     Dosage: 400/250 MG, BID
     Route: 048
     Dates: start: 20160520
  4. PREDNISONE. [Concomitant]
     Active Substance: PREDNISONE
  5. CULTURELLE [Concomitant]
     Active Substance: LACTOBACILLUS RHAMNOSUS
  6. ZENPEP [Concomitant]
     Active Substance: PANCRELIPASE AMYLASE\PANCRELIPASE LIPASE\PANCRELIPASE PROTEASE
  7. AMOXCLAV                           /00852501/ [Concomitant]
     Active Substance: AMOXICILLIN\CLAVULANIC ACID
  8. PULMOZYME [Concomitant]
     Active Substance: DORNASE ALFA
  9. METRONIDAZOLE. [Concomitant]
     Active Substance: METRONIDAZOLE
  10. SYMBICORT [Concomitant]
     Active Substance: BUDESONIDE\FORMOTEROL FUMARATE DIHYDRATE
  11. PROVENTIL [Concomitant]
     Active Substance: ALBUTEROL
  12. DIAZEPAM. [Concomitant]
     Active Substance: DIAZEPAM
  13. SODIUM CHLORIDE. [Concomitant]
     Active Substance: SODIUM CHLORIDE
  14. FLUTICASONE. [Concomitant]
     Active Substance: FLUTICASONE
  15. MELATONIN [Concomitant]
     Active Substance: MELATONIN
  16. CETIRIZINE [Concomitant]
     Active Substance: CETIRIZINE HYDROCHLORIDE
  17. SULFAMETHOXAZOLE AND TRIMETHOPRIM [Concomitant]
     Active Substance: SULFAMETHOXAZOLE\TRIMETHOPRIM
  18. OMEPRAZOLE. [Concomitant]
     Active Substance: OMEPRAZOLE
  19. MELOXICAM. [Concomitant]
     Active Substance: MELOXICAM
  20. PROVENTIL [Concomitant]
     Active Substance: ALBUTEROL
  21. SUCRALFATE. [Concomitant]
     Active Substance: SUCRALFATE
  22. GENERLAC [Concomitant]
     Active Substance: LACTULOSE
  23. LEVOFLOXACIN. [Concomitant]
     Active Substance: LEVOFLOXACIN
  24. AQUADEKS                           /07679501/ [Concomitant]
     Active Substance: MINERALS\VITAMINS
  25. WAL ZYR NOS [Concomitant]
     Active Substance: CETIRIZINE HYDROCHLORIDE OR KETOTIFEN FUMARATE
  26. ALTAVERA [Concomitant]
     Active Substance: ETHINYL ESTRADIOL\LEVONORGESTREL
  27. POLYETHYLENE GLYCOL [Concomitant]
     Active Substance: POLYETHYLENE GLYCOLS
  28. OSELTAMIVIR [Concomitant]
     Active Substance: OSELTAMIVIR
  29. NEBUSAL [Concomitant]
     Active Substance: SODIUM CHLORIDE
  30. HUMALOG [Concomitant]
     Active Substance: INSULIN LISPRO
  31. VITAMIN D3 [Concomitant]
     Active Substance: CHOLECALCIFEROL
  32. GLUCOSE [Concomitant]
     Active Substance: DEXTROSE
  33. BETHKIS [Concomitant]
     Active Substance: TOBRAMYCIN
  34. DICYCLOMINE                        /00068601/ [Concomitant]
     Active Substance: DICYCLOMINE HYDROCHLORIDE

REACTIONS (1)
  - Asthma [Unknown]
